FAERS Safety Report 16767207 (Version 1)
Quarter: 2019Q4

REPORT INFORMATION
  Report Type: Spontaneous
  Country: US (occurrence: US)
  Receive Date: 20190902
  Receipt Date: 20190902
  Transmission Date: 20200122
  Serious: Yes (Hospitalization)
  Sender: FDA-Public Use
  Company Number: None

PATIENT
  Age: 30 Year
  Sex: Female
  Weight: 99 kg

DRUGS (8)
  1. CERVIDIL [Suspect]
     Active Substance: DINOPROSTONE
     Indication: LABOUR INDUCTION
     Route: 067
  2. PRENATAL [Concomitant]
     Active Substance: VITAMINS
  3. PITOCIN [Concomitant]
     Active Substance: OXYTOCIN
  4. BENADRYL [Concomitant]
     Active Substance: DIPHENHYDRAMINE HYDROCHLORIDE
  5. CYTOTEC [Concomitant]
     Active Substance: MISOPROSTOL
  6. COLACE [Concomitant]
     Active Substance: DOCUSATE SODIUM
  7. PEPCID [Concomitant]
     Active Substance: FAMOTIDINE
  8. DULCOLAX NOS [Concomitant]
     Active Substance: BISACODYL OR DOCUSATE SODIUM

REACTIONS (5)
  - Wrong technique in product usage process [None]
  - Foetal exposure during pregnancy [None]
  - Vulvovaginal swelling [None]
  - Vulvovaginal burning sensation [None]
  - Maternal exposure during pregnancy [None]

NARRATIVE: CASE EVENT DATE: 20171221
